FAERS Safety Report 10960821 (Version 1)
Quarter: 2015Q1

REPORT INFORMATION
  Report Type: Spontaneous
  Country: JP (occurrence: JP)
  Receive Date: 20150327
  Receipt Date: 20150327
  Transmission Date: 20150721
  Serious: Yes (Other)
  Sender: FDA-Public Use
  Company Number: JP-PFIZER INC-2015005437

PATIENT
  Age: 41 Year
  Sex: Female

DRUGS (2)
  1. FOSPHENYTOIN SODIUM. [Suspect]
     Active Substance: FOSPHENYTOIN SODIUM
     Indication: STATUS EPILEPTICUS
     Dosage: UNK
     Dates: start: 20140625
  2. CARBOPLATIN/PACLITAXEL [Concomitant]
     Indication: OVARIAN CANCER
     Dosage: UNK

REACTIONS (2)
  - Diabetes insipidus [Recovered/Resolved]
  - Blood antidiuretic hormone increased [Unknown]

NARRATIVE: CASE EVENT DATE: 201406
